FAERS Safety Report 12794945 (Version 1)
Quarter: 2016Q3

REPORT INFORMATION
  Report Type: Spontaneous
  Country: US (occurrence: US)
  Receive Date: 20160929
  Receipt Date: 20160929
  Transmission Date: 20161109
  Serious: No
  Sender: FDA-Public Use
  Company Number: US-BAUSCH-BL-2016-020291

PATIENT
  Age: 54 Year
  Sex: Male
  Weight: 63.56 kg

DRUGS (1)
  1. JUBLIA [Suspect]
     Active Substance: EFINACONAZOLE
     Indication: ONYCHOMYCOSIS
     Dosage: ONE APPLICATION DAILY IN THE MORNING
     Route: 061
     Dates: start: 2015, end: 201607

REACTIONS (1)
  - Drug ineffective [Unknown]
